FAERS Safety Report 6547727-3 (Version None)
Quarter: 2010Q1

REPORT INFORMATION
  Report Type: 
  Country: None (occurrence: None)
  Receive Date: 20100123
  Receipt Date: 20100120
  Transmission Date: 20100710
  Serious: Yes (Death, Other)
  Sender: FDA-Public Use
  Company Number: JP-JNJFOC-20091103974

PATIENT
  Sex: Female

DRUGS (8)
  1. DUROTEP MT [Suspect]
     Indication: CANCER PAIN
     Route: 062
  2. DUROTEP MT [Suspect]
     Route: 062
  3. DUROTEP MT [Suspect]
     Route: 062
  4. DUROTEP MT [Suspect]
     Route: 062
  5. MAGLAX [Concomitant]
     Indication: CERVIX CARCINOMA
     Route: 048
  6. PRIMPERAN TAB [Concomitant]
     Indication: CERVIX CARCINOMA
     Route: 048
  7. MUCOSTA [Concomitant]
     Indication: CERVIX CARCINOMA
     Route: 048
  8. LENDORMIN [Concomitant]
     Indication: CERVIX CARCINOMA
     Route: 048

REACTIONS (5)
  - APPLICATION SITE EROSION [None]
  - APPLICATION SITE PAIN [None]
  - CERVIX CARCINOMA [None]
  - EPIDERMOLYSIS [None]
  - PRODUCT QUALITY ISSUE [None]
